FAERS Safety Report 20744409 (Version 4)
Quarter: 2023Q2

REPORT INFORMATION
  Report Type: Spontaneous
  Country: US (occurrence: US)
  Receive Date: 20220425
  Receipt Date: 20230406
  Transmission Date: 20230721
  Serious: Yes (Other)
  Sender: FDA-Public Use
  Company Number: US-PFIZER INC-202200196529

PATIENT
  Age: 63 Year
  Sex: Male

DRUGS (4)
  1. INLYTA [Suspect]
     Active Substance: AXITINIB
     Dosage: 5 MG
     Dates: start: 20210701
  2. INLYTA [Suspect]
     Active Substance: AXITINIB
     Dosage: 10 MG, 2X/DAY
     Dates: start: 202205
  3. INLYTA [Suspect]
     Active Substance: AXITINIB
     Dosage: 5 MG, 2X/DAY
     Dates: end: 202212
  4. INLYTA [Suspect]
     Active Substance: AXITINIB
     Dosage: START AT LOW DOSE AND TAPERING UP AS TOLERATED, CURRENTLY AT ABOUT HALF USUAL DOSE
     Dates: start: 202303

REACTIONS (7)
  - Adrenal disorder [Unknown]
  - Breakthrough pain [Unknown]
  - Fatigue [Recovering/Resolving]
  - Weight decreased [Recovering/Resolving]
  - Gastrointestinal disorder [Recovering/Resolving]
  - Bowel movement irregularity [Unknown]
  - Diarrhoea [Unknown]
